FAERS Safety Report 15826360 (Version 2)
Quarter: 2019Q1

REPORT INFORMATION
  Report Type: Spontaneous
  Country: PL (occurrence: PL)
  Receive Date: 20190115
  Receipt Date: 20190211
  Transmission Date: 20190417
  Serious: Yes (Hospitalization)
  Sender: FDA-Public Use
  Company Number: PHHY2019PL003988

PATIENT
  Age: 52 Year
  Sex: Female

DRUGS (8)
  1. CIPROFLOXACIN HYDROCHLORIDE. [Interacting]
     Active Substance: CIPROFLOXACIN HYDROCHLORIDE
     Indication: URINARY TRACT INFECTION
     Dosage: 500 MG, BID
     Route: 048
  2. DULOXETINE HYDROCHLORIDE. [Suspect]
     Active Substance: DULOXETINE HYDROCHLORIDE
     Indication: MAJOR DEPRESSION
     Dosage: 10 MG, QHS
     Route: 065
  3. TRAMADOL HYDROCHLORIDE. [Interacting]
     Active Substance: TRAMADOL HYDROCHLORIDE
     Indication: PRODUCT USED FOR UNKNOWN INDICATION
     Dosage: UNK
     Route: 065
  4. CEFTRIAXONE. [Concomitant]
     Active Substance: CEFTRIAXONE
     Indication: PRODUCT USED FOR UNKNOWN INDICATION
     Dosage: UNK
     Route: 065
  5. CIPROFLOXACIN HYDROCHLORIDE. [Interacting]
     Active Substance: CIPROFLOXACIN HYDROCHLORIDE
     Indication: EVIDENCE BASED TREATMENT
     Dosage: 500 MG, TID
     Route: 048
  6. ZOLPIDEM TARTRATE. [Suspect]
     Active Substance: ZOLPIDEM TARTRATE
     Indication: MAJOR DEPRESSION
     Dosage: 10 MG, QHS
     Route: 065
  7. KETOPROFEN. [Suspect]
     Active Substance: KETOPROFEN
     Indication: PRODUCT USED FOR UNKNOWN INDICATION
     Dosage: UNK
     Route: 065
  8. OXYCODONE [Concomitant]
     Active Substance: OXYCODONE
     Indication: PRODUCT USED FOR UNKNOWN INDICATION
     Dosage: UNK
     Route: 065

REACTIONS (7)
  - Drug interaction [Unknown]
  - Leukocytosis [Recovered/Resolved]
  - Withdrawal syndrome [Recovered/Resolved]
  - Myalgia [Recovered/Resolved]
  - Condition aggravated [Recovered/Resolved]
  - Hyperhidrosis [Recovered/Resolved]
  - Drug ineffective [Unknown]
